FAERS Safety Report 7687733-9 (Version None)
Quarter: 2011Q3

REPORT INFORMATION
  Report Type: 
  Country: None (occurrence: None)
  Receive Date: 20110817
  Receipt Date: 20110805
  Transmission Date: 20111222
  Serious: Yes (Death, Hospitalization)
  Sender: FDA-Public Use
  Company Number: US-JNJFOC-20110803222

PATIENT
  Sex: Female
  Weight: 46.27 kg

DRUGS (8)
  1. STELARA [Suspect]
     Indication: PSORIASIS
     Route: 058
     Dates: start: 20110405
  2. PREDNISONE [Concomitant]
  3. ESTROGENIC SUBSTANCE [Concomitant]
  4. AZATHIOPRINE [Concomitant]
  5. PHENERGAN HCL [Concomitant]
     Indication: NAUSEA
  6. PERCOCET [Concomitant]
     Indication: PAIN
  7. DILAUDID [Concomitant]
  8. STELARA [Suspect]
     Route: 058
     Dates: start: 20100106

REACTIONS (2)
  - CROHN'S DISEASE [None]
  - INTESTINAL ISCHAEMIA [None]
